FAERS Safety Report 18362208 (Version 2)
Quarter: 2020Q4

REPORT INFORMATION
  Report Type: Spontaneous
  Country: US (occurrence: US)
  Receive Date: 20201008
  Receipt Date: 20201012
  Transmission Date: 20210114
  Serious: No
  Sender: FDA-Public Use
  Company Number: US-PFIZER INC-2020386203

PATIENT
  Age: 50 Year
  Sex: Female
  Weight: 117.93 kg

DRUGS (2)
  1. ZYVOX [Suspect]
     Active Substance: LINEZOLID
     Indication: SKIN INFECTION
     Dosage: 600 MG, 2X/DAY (EVERY 12)
  2. ZYVOX [Suspect]
     Active Substance: LINEZOLID
     Indication: WOUND INFECTION

REACTIONS (1)
  - Disease recurrence [Unknown]
